FAERS Safety Report 4624961-0 (Version None)
Quarter: 2005Q2

REPORT INFORMATION
  Report Type: 
  Country: None (occurrence: None)
  Receive Date: 20050325
  Receipt Date: 20050122
  Transmission Date: 20051028
  Serious: No
  Sender: FDA-Public Use
  Company Number: USA050290662

PATIENT
  Age: 82 Year
  Sex: Female

DRUGS (8)
  1. FORTEO [Suspect]
     Indication: OSTEOPOROSIS
     Dates: start: 20040729, end: 20041201
  2. PREDNISONE [Concomitant]
  3. PLAQUENIL [Concomitant]
  4. NORVASC [Concomitant]
  5. NITRO PATCH (GLYCERYL TRINITRATE) [Concomitant]
  6. CALCIUM GLUCONATE [Concomitant]
  7. NEXIUM [Concomitant]
  8. FOLIC ACID [Concomitant]

REACTIONS (1)
  - HEPATIC ENZYME INCREASED [None]
